FAERS Safety Report 8969238 (Version 1)
Quarter: 2012Q4

REPORT INFORMATION
  Report Type: 
  Country: US (occurrence: US)
  Receive Date: 20121218
  Receipt Date: 20121218
  Transmission Date: 20130627
  Serious: No
  Sender: FDA-Public Use
  Company Number: US-BRISTOL-MYERS SQUIBB COMPANY-16666208

PATIENT
  Age: 26 Year
  Sex: Female
  Weight: 86.17 kg

DRUGS (3)
  1. ABILIFY [Suspect]
     Indication: SCHIZOPHRENIA, PARANOID TYPE
     Dosage: therapy start date: 2009 or 2010
  2. ZOLOFT [Concomitant]
  3. DEPO-PROVERA [Concomitant]

REACTIONS (5)
  - Musculoskeletal stiffness [Unknown]
  - Staring [Unknown]
  - Blepharospasm [Unknown]
  - Tremor [Unknown]
  - Eye movement disorder [Unknown]
